FAERS Safety Report 19175695 (Version 2)
Quarter: 2021Q2

REPORT INFORMATION
  Report Type: Spontaneous
  Country: JP (occurrence: JP)
  Receive Date: 20210423
  Receipt Date: 20210503
  Transmission Date: 20210717
  Serious: Yes (Death, Hospitalization)
  Sender: FDA-Public Use
  Company Number: JP-ELI_LILLY_AND_COMPANY-JP202104009530

PATIENT
  Age: 84 Year
  Sex: Female

DRUGS (17)
  1. UPTRAVI [Suspect]
     Active Substance: SELEXIPAG
     Indication: PULMONARY ARTERIAL HYPERTENSION
     Dosage: 2.8 MG, DAILY
     Route: 048
     Dates: start: 20180407
  2. PANTOSIN [Concomitant]
     Active Substance: PANTETHINE
     Dosage: 0.6 G, UNKNOWN
  3. FUROSEMIDE. [Concomitant]
     Active Substance: FUROSEMIDE
     Dosage: 20 MG, UNKNOWN
     Dates: start: 20180914
  4. OPSUMIT [Concomitant]
     Active Substance: MACITENTAN
     Indication: PULMONARY ARTERIAL HYPERTENSION
     Dosage: 10 MG, UNKNOWN
     Route: 065
     Dates: start: 20170901, end: 20180112
  5. GASMOTIN [Concomitant]
     Active Substance: MOSAPRIDE CITRATE
     Dosage: 15 MG, UNKNOWN
  6. PROCYLIN [Concomitant]
     Active Substance: BERAPROST SODIUM
     Indication: PULMONARY ARTERIAL HYPERTENSION
     Dosage: 60 UG, UNKNOWN
     Dates: end: 20171101
  7. THYRADIN S [Concomitant]
     Active Substance: LEVOTHYROXINE SODIUM
     Indication: AUTOIMMUNE THYROIDITIS
     Dosage: 50 UG, UNKNOWN
  8. THEO?DUR [Concomitant]
     Active Substance: THEOPHYLLINE ANHYDROUS
     Indication: BRONCHITIS
     Dosage: 300 MG, UNKNOWN
  9. ADCIRCA [Suspect]
     Active Substance: TADALAFIL
     Indication: PULMONARY ARTERIAL HYPERTENSION
     Dosage: 40 MG, DAILY
     Route: 065
  10. MUCODYNE [Concomitant]
     Active Substance: CARBOCYSTEINE
     Indication: BRONCHITIS
     Dosage: 1500 MG, UNKNOWN
  11. METHYCOBAL [Concomitant]
     Active Substance: METHYLCOBALAMIN
     Indication: NEUROPATHY PERIPHERAL
     Dosage: 1500 UG, UNKNOWN
  12. JUVELA N [Concomitant]
     Active Substance: TOCOPHERYL NICOTINATE, D-.ALPHA.
     Dosage: 600 MG, UNKNOWN
  13. EPADEL T [Concomitant]
     Active Substance: ICOSAPENT ETHYL
     Indication: HYPERLIPIDAEMIA
     Dosage: 1800 MG
     Dates: end: 20200207
  14. LAC?B [Concomitant]
     Active Substance: BIFIDOBACTERIUM SPP.
     Indication: PROPHYLAXIS
     Dosage: 3 DOSAGE FORM, UNKNOWN
  15. VOLIBRIS [Concomitant]
     Active Substance: AMBRISENTAN
     Indication: PULMONARY ARTERIAL HYPERTENSION
     Dosage: 5 MG, UNKNOWN
     Dates: start: 20180113
  16. NEXIUM MUPS [ESOMEPRAZOLE MAGNESIUM] [Concomitant]
     Active Substance: ESOMEPRAZOLE MAGNESIUM
     Indication: GASTROOESOPHAGEAL REFLUX DISEASE
     Dosage: 20 MG, UNKNOWN
  17. ANPLAG [SARPOGRELATE HYDROCHLORIDE] [Concomitant]
     Active Substance: SARPOGRELATE HYDROCHLORIDE
     Indication: PHARYNGITIS
     Dosage: 300 MG, UNKNOWN

REACTIONS (2)
  - Death [Fatal]
  - Depressed level of consciousness [Unknown]

NARRATIVE: CASE EVENT DATE: 20210125
